FAERS Safety Report 17826939 (Version 2)
Quarter: 2020Q2

REPORT INFORMATION
  Report Type: Report from Study
  Country: MX (occurrence: MX)
  Receive Date: 20200526
  Receipt Date: 20200608
  Transmission Date: 20200714
  Serious: Yes (Hospitalization)
  Sender: FDA-Public Use
  Company Number: NVSC2020MX143810

PATIENT
  Age: 80 Year
  Sex: Female
  Weight: 65 kg

DRUGS (2)
  1. ENTRESTO [Suspect]
     Active Substance: SACUBITRIL\VALSARTAN
     Indication: CARDIAC FAILURE
     Dosage: 1 DF, QD
     Route: 048
     Dates: start: 202004
  2. ENTRESTO [Suspect]
     Active Substance: SACUBITRIL\VALSARTAN
     Dosage: 1 DF, QD
     Route: 048
     Dates: start: 20200602

REACTIONS (3)
  - Underdose [Unknown]
  - COVID-19 [Recovered/Resolved with Sequelae]
  - Inappropriate schedule of product administration [Unknown]

NARRATIVE: CASE EVENT DATE: 20200512
